FAERS Safety Report 15414673 (Version 1)
Quarter: 2018Q3

REPORT INFORMATION
  Report Type: Spontaneous
  Country: AU (occurrence: AU)
  Receive Date: 20180921
  Receipt Date: 20180921
  Transmission Date: 20181010
  Serious: Yes (Death, Hospitalization, Other)
  Sender: FDA-Public Use
  Company Number: PHHY2018AU096878

PATIENT
  Age: 55 Year
  Sex: Female

DRUGS (2)
  1. CARBOPLATIN. [Suspect]
     Active Substance: CARBOPLATIN
     Indication: OVARIAN CANCER STAGE III
     Dosage: 385MG/BODY (THREE WEEKLY CYCLE)
     Route: 065
  2. PACLITAXEL. [Suspect]
     Active Substance: PACLITAXEL
     Indication: OVARIAN CANCER STAGE III
     Dosage: 100 MG/M2, (THREE WEEKLY CYCLE)
     Route: 065

REACTIONS (7)
  - Rectal perforation [Fatal]
  - Neutropenia [Not Recovered/Not Resolved]
  - Diarrhoea [Fatal]
  - Abdominal pain [Fatal]
  - Pyrexia [Fatal]
  - Septic shock [Unknown]
  - Escherichia infection [Unknown]
